FAERS Safety Report 5320508-4 (Version None)
Quarter: 2007Q1

REPORT INFORMATION
  Report Type: 
  Country: None (occurrence: None)
  Receive Date: 20070215
  Receipt Date: 20061115
  Transmission Date: 20070707
  Serious: Yes (Other)
  Sender: FDA-Public Use
  Company Number: MC200600804

PATIENT
  Age: 60 Year
  Sex: Female

DRUGS (4)
  1. ANGIOMAX [Suspect]
     Indication: PERCUTANEOUS CORONARY INTERVENTION
  2. ASPIRIN [Concomitant]
  3. PLAVIX [Concomitant]
  4. CLOPIDOGREL [Concomitant]

REACTIONS (1)
  - THROMBOSIS [None]
